FAERS Safety Report 8261578-3 (Version None)
Quarter: 2012Q1

REPORT INFORMATION
  Report Type: 
  Country: None (occurrence: None)
  Receive Date: 20120330
  Receipt Date: 20120319
  Transmission Date: 20120608
  Serious: Yes (Hospitalization)
  Sender: FDA-Public Use
  Company Number: JPI-P-020490

PATIENT
  Age: 55 Year
  Sex: Male
  Weight: 106.1417 kg

DRUGS (11)
  1. ASPIRIN [Concomitant]
  2. XYREM [Suspect]
     Indication: CATAPLEXY
     Dosage: 4.5;7.5 GM (2.25;3.75 GM, 2 IN 1 D), ORAL
     Route: 048
     Dates: start: 20120318
  3. XYREM [Suspect]
     Indication: CATAPLEXY
     Dosage: 4.5;7.5 GM (2.25;3.75 GM, 2 IN 1 D), ORAL
     Route: 048
     Dates: start: 20120301, end: 20120301
  4. XYREM [Suspect]
     Indication: CATAPLEXY
     Dosage: 4.5;7.5 GM (2.25;3.75 GM, 2 IN 1 D), ORAL
     Route: 048
     Dates: start: 20120316, end: 20120301
  5. XYREM [Suspect]
     Indication: CATAPLEXY
     Dosage: 4.5;7.5 GM (2.25;3.75 GM, 2 IN 1 D), ORAL
     Route: 048
     Dates: start: 20120301, end: 20120301
  6. DULOXETINE HYDROCHLORIDE [Concomitant]
  7. RAMIPRIL [Concomitant]
  8. LACOSAMIDE [Concomitant]
  9. CARVEDILOL [Concomitant]
  10. DOFETILIDE [Concomitant]
  11. ARIPIPRAZOLE [Concomitant]

REACTIONS (3)
  - CATAPLEXY [None]
  - CONDITION AGGRAVATED [None]
  - TRANSIENT ISCHAEMIC ATTACK [None]
